FAERS Safety Report 7889934-3 (Version None)
Quarter: 2011Q4

REPORT INFORMATION
  Report Type: 
  Country: None (occurrence: None)
  Receive Date: 20111103
  Receipt Date: 20111028
  Transmission Date: 20120403
  Serious: Yes (Death, Hospitalization)
  Sender: FDA-Public Use
  Company Number: IE-AMGEN-IRLSP2011054239

PATIENT
  Sex: Female

DRUGS (6)
  1. LASIX [Concomitant]
     Dosage: 40 MG, UNK
  2. NU-SEALS ASPIRIN [Concomitant]
  3. ARANESP [Suspect]
     Indication: ANAEMIA
     Dosage: 150 MUG, QWK
     Route: 058
     Dates: start: 20110901
  4. LEXAPRO [Concomitant]
  5. CARDICOR [Concomitant]
  6. LIPITOR [Concomitant]

REACTIONS (2)
  - CEREBROVASCULAR ACCIDENT [None]
  - DEATH [None]
